FAERS Safety Report 24327771 (Version 1)
Quarter: 2024Q3

REPORT INFORMATION
  Report Type: Spontaneous
  Country: US (occurrence: None)
  Receive Date: 20240917
  Receipt Date: 20240917
  Transmission Date: 20241017
  Serious: Yes (Other)
  Sender: Public
  Company Number: None

PATIENT
  Age: 70 Year
  Sex: Female
  Weight: 79.65 kg

DRUGS (1)
  1. XIAFLEX [Suspect]
     Active Substance: COLLAGENASE CLOSTRIDIUM HISTOLYTICUM
     Indication: Product used for unknown indication
     Dates: start: 20240509

REACTIONS (7)
  - Lymphadenopathy [None]
  - Contusion [None]
  - Pain in extremity [None]
  - Contusion [None]
  - Myalgia [None]
  - Tendon pain [None]
  - Hypersensitivity [None]

NARRATIVE: CASE EVENT DATE: 20240509
